FAERS Safety Report 20597385 (Version 2)
Quarter: 2022Q1

REPORT INFORMATION
  Report Type: Spontaneous
  Country: US (occurrence: US)
  Receive Date: 20220315
  Receipt Date: 20220316
  Transmission Date: 20220423
  Serious: Yes (Other)
  Sender: FDA-Public Use
  Company Number: US-BEH-2022143101

PATIENT
  Age: 54 Year
  Sex: Female
  Weight: 99.32 kg

DRUGS (2)
  1. HUMATE-P [Suspect]
     Active Substance: HUMAN COAGULATION FACTOR VIII/VON WILLEBRAND FACTOR COMPLEX
     Indication: Von Willebrand^s disease
     Dosage: 2000 INTERNATIONAL UNIT, QD
     Route: 042
     Dates: start: 20210608
  2. HUMATE-P [Suspect]
     Active Substance: HUMAN COAGULATION FACTOR VIII/VON WILLEBRAND FACTOR COMPLEX
     Dosage: 2000 INTERNATIONAL UNIT, PRN
     Route: 042
     Dates: start: 20180326

REACTIONS (10)
  - Haemoptysis [Recovered/Resolved]
  - Vocal cord disorder [Unknown]
  - Headache [Unknown]
  - Cough [Unknown]
  - Fall [Unknown]
  - Ligament sprain [Unknown]
  - Ligament sprain [Unknown]
  - Thermal burn [Unknown]
  - Weight increased [Unknown]
  - General physical health deterioration [Unknown]

NARRATIVE: CASE EVENT DATE: 20211201
